FAERS Safety Report 9387575 (Version 11)
Quarter: 2014Q3

REPORT INFORMATION
  Report Type: Report from Study
  Country: FR (occurrence: FR)
  Receive Date: 20130708
  Receipt Date: 20140731
  Transmission Date: 20150326
  Serious: Yes (Death, Life-Threatening, Hospitalization)
  Sender: FDA-Public Use
  Company Number: FR-ROCHE-1243248

PATIENT
  Age: 64 Year
  Sex: Female
  Weight: 71 kg

DRUGS (29)
  1. BROMAZEPAM [Concomitant]
     Active Substance: BROMAZEPAM
     Indication: DEPRESSION
     Dosage: 1/2 TABLET MORNING, 1/2 NOON, 1 TABLET EVENING (6 MG)
     Route: 048
     Dates: start: 20130415, end: 20130423
  2. ACETYLLEUCINE [Concomitant]
     Active Substance: ACETYLLEUCINE
     Indication: VERTIGO
     Route: 048
     Dates: start: 20130101, end: 20130422
  3. RIBAVIRIN. [Suspect]
     Active Substance: RIBAVIRIN
     Indication: HEPATITIS C
     Dosage: 2 TABS IN AM, 3 TABS IN PM
     Route: 048
     Dates: start: 20130422, end: 20130430
  4. SPIRONOLACTONE. [Concomitant]
     Active Substance: SPIRONOLACTONE
     Indication: HYPERTENSION
     Route: 048
     Dates: start: 20130415, end: 20130422
  5. NICARDIPINE [Concomitant]
     Active Substance: NICARDIPINE
  6. JANUVIA [Concomitant]
     Active Substance: SITAGLIPTIN PHOSPHATE
     Indication: DIABETES MELLITUS
     Route: 048
     Dates: start: 19881002, end: 20130422
  7. FUROSEMIDE. [Concomitant]
     Active Substance: FUROSEMIDE
     Indication: HYPERTENSION
     Route: 048
     Dates: start: 20130424, end: 20130429
  8. ACTRAPID [Concomitant]
     Active Substance: INSULIN HUMAN
     Indication: DIABETES MELLITUS
     Route: 058
     Dates: start: 20130501
  9. STILNOX [Concomitant]
     Active Substance: ZOLPIDEM TARTRATE
     Route: 048
     Dates: start: 20130325, end: 20130422
  10. STILNOX [Concomitant]
     Active Substance: ZOLPIDEM TARTRATE
     Dosage: EXCEPT ON 24/APR/2013
     Route: 048
     Dates: start: 20130423, end: 20130429
  11. FUROSEMIDE. [Concomitant]
     Active Substance: FUROSEMIDE
     Indication: OEDEMA
     Route: 048
     Dates: start: 20130415, end: 20130422
  12. ACETYLLEUCINE [Concomitant]
     Active Substance: ACETYLLEUCINE
     Dosage: EXCEPT 25/APR/2013
     Route: 048
     Dates: start: 20130424, end: 20130430
  13. PEVARYL [Concomitant]
     Active Substance: ECONAZOLE NITRATE
     Indication: FUNGAL SKIN INFECTION
     Route: 062
     Dates: start: 20130415, end: 20130422
  14. SEVIKAR [Concomitant]
     Active Substance: AMLODIPINE BESYLATE\OLMESARTAN MEDOXOMIL
     Indication: HYPERTENSION
     Route: 048
     Dates: start: 1989, end: 20130423
  15. ACETYLLEUCINE [Concomitant]
     Active Substance: ACETYLLEUCINE
     Route: 048
     Dates: start: 201201, end: 20130422
  16. LOXEN (FRANCE) [Concomitant]
     Active Substance: NICARDIPINE HYDROCHLORIDE
     Route: 048
     Dates: start: 20130427, end: 20130430
  17. METFORMIN HYDROCHLORIDE. [Suspect]
     Active Substance: METFORMIN HYDROCHLORIDE
     Indication: PRODUCT USED FOR UNKNOWN INDICATION
     Route: 048
     Dates: start: 1989, end: 201204
  18. METFORMIN HYDROCHLORIDE. [Suspect]
     Active Substance: METFORMIN HYDROCHLORIDE
     Dosage: EXCEPT ON 26/APR/ 2013 MORNING DOSE NOT TAKEN
     Route: 048
     Dates: start: 20130415, end: 20130430
  19. RITONAVIR [Suspect]
     Active Substance: RITONAVIR
     Indication: HEPATITIS C
     Dosage: 150MG/100MG/25MG
     Route: 048
     Dates: start: 20130422, end: 20130430
  20. ABT-333 [Suspect]
     Active Substance: DASABUVIR
     Indication: HEPATITIS C
     Route: 048
     Dates: start: 20130422, end: 20130430
  21. STILNOX [Concomitant]
     Active Substance: ZOLPIDEM TARTRATE
     Route: 048
     Dates: start: 20130318, end: 20130325
  22. AERIUS [Concomitant]
     Active Substance: DESLORATADINE
     Indication: RHINITIS ALLERGIC
     Route: 048
     Dates: start: 20130415, end: 20130422
  23. RIBAVIRIN. [Suspect]
     Active Substance: RIBAVIRIN
     Route: 065
     Dates: start: 20110104, end: 20110404
  24. METFORMIN HYDROCHLORIDE. [Suspect]
     Active Substance: METFORMIN HYDROCHLORIDE
     Route: 048
     Dates: start: 201204, end: 20130414
  25. JANUVIA [Concomitant]
     Active Substance: SITAGLIPTIN PHOSPHATE
     Route: 048
     Dates: start: 20130425, end: 20130430
  26. SPIRONOLACTONE. [Concomitant]
     Active Substance: SPIRONOLACTONE
     Indication: OEDEMA
     Route: 048
     Dates: start: 20130423, end: 20130429
  27. BROMAZEPAM [Concomitant]
     Active Substance: BROMAZEPAM
     Dosage: 0.5 AM, 0.5 12AM AND 1 PILL AT NEIGHT 23/APR/2013 AND 30/APR/2013 NIGHT DOSE
     Route: 048
     Dates: start: 20130423, end: 20130430
  28. TIANEPTINE [Concomitant]
     Active Substance: TIANEPTINE
     Indication: DEPRESSION
     Route: 048
     Dates: start: 20130318, end: 20130422
  29. AMLODIPINE [Concomitant]
     Active Substance: AMLODIPINE BESYLATE
     Indication: HYPERTENSION
     Route: 048
     Dates: start: 20130425, end: 20130430

REACTIONS (20)
  - Enterococcal infection [Recovered/Resolved]
  - Enterocutaneous fistula [Recovered/Resolved]
  - Pleural effusion [Recovered/Resolved]
  - Bacterial sepsis [Fatal]
  - Lactic acidosis [Recovered/Resolved]
  - Nausea [Recovered/Resolved]
  - Bronchopulmonary aspergillosis [Recovered/Resolved]
  - Septic shock [Fatal]
  - Multi-organ failure [Fatal]
  - Intestinal ischaemia [Recovered/Resolved]
  - Rectal haemorrhage [Recovered/Resolved]
  - Escherichia sepsis [Fatal]
  - Rhabdomyolysis [Recovered/Resolved]
  - Hepatic haemorrhage [Recovered/Resolved]
  - Vomiting [Recovered/Resolved]
  - Pneumonia bacterial [Fatal]
  - Duodenal ulcer haemorrhage [Recovered/Resolved]
  - Oedema peripheral [Recovered/Resolved]
  - Fistula discharge [Recovered/Resolved]
  - Candida sepsis [Recovered/Resolved]

NARRATIVE: CASE EVENT DATE: 20130422
